FAERS Safety Report 14576679 (Version 1)
Quarter: 2018Q1

REPORT INFORMATION
  Report Type: Spontaneous
  Country: US (occurrence: US)
  Receive Date: 20180224
  Receipt Date: 20180224
  Transmission Date: 20180509
  Serious: Yes (Hospitalization)
  Sender: FDA-Public Use
  Company Number: None

PATIENT
  Age: 66 Year
  Sex: Female

DRUGS (1)
  1. ORENCIA [Suspect]
     Active Substance: ABATACEPT
     Indication: RHEUMATOID ARTHRITIS
     Dosage: UNDER THE SKIN
     Route: 058
     Dates: start: 20180125

REACTIONS (3)
  - Pain [None]
  - Benign neoplasm [None]
  - Tendon rupture [None]

NARRATIVE: CASE EVENT DATE: 20180129
